FAERS Safety Report 22066288 (Version 1)
Quarter: 2023Q1

REPORT INFORMATION
  Report Type: Spontaneous
  Country: US (occurrence: US)
  Receive Date: 20230306
  Receipt Date: 20230306
  Transmission Date: 20230418
  Serious: Yes (Other)
  Sender: FDA-Public Use
  Company Number: US-ALLERGAN-2305760US

PATIENT
  Sex: Female

DRUGS (11)
  1. UBRELVY [Suspect]
     Active Substance: UBROGEPANT
     Indication: Migraine
     Dosage: UNK
  2. VUMERITY [Suspect]
     Active Substance: DIROXIMEL FUMARATE
     Indication: Multiple sclerosis
     Dosage: 462 MG, BID
     Route: 048
  3. VUMERITY [Suspect]
     Active Substance: DIROXIMEL FUMARATE
     Dosage: 231 MG, BID, FOR FIRST 7 DAYS
     Route: 048
  4. BACLOFEN [Concomitant]
     Active Substance: BACLOFEN
  5. ALPRAZOLAM [Concomitant]
     Active Substance: ALPRAZOLAM
  6. XARELTO [Concomitant]
     Active Substance: RIVAROXABAN
  7. TOPIRAMATE [Concomitant]
     Active Substance: TOPIRAMATE
     Indication: Migraine
  8. VITAMIN D3 [Concomitant]
     Active Substance: CHOLECALCIFEROL
  9. CYANOCOBALAMIN [Concomitant]
     Active Substance: CYANOCOBALAMIN
  10. ADULT MULTIVITAMIN [Concomitant]
  11. ZOFRAN [Concomitant]
     Active Substance: ONDANSETRON HYDROCHLORIDE
     Indication: Migraine

REACTIONS (2)
  - Multiple sclerosis relapse [Unknown]
  - Migraine [Unknown]

NARRATIVE: CASE EVENT DATE: 20230101
